APPROVED DRUG PRODUCT: AMICAR
Active Ingredient: AMINOCAPROIC ACID
Strength: 1GM
Dosage Form/Route: TABLET;ORAL
Application: N015197 | Product #002 | TE Code: AB
Applicant: HIKMA PHARMACEUTICALS USA INC
Approved: Jun 24, 2004 | RLD: Yes | RS: No | Type: RX